FAERS Safety Report 14238200 (Version 2)
Quarter: 2018Q1

REPORT INFORMATION
  Report Type: Spontaneous
  Country: US (occurrence: US)
  Receive Date: 20171130
  Receipt Date: 20180130
  Transmission Date: 20180508
  Serious: Yes (Hospitalization, Other)
  Sender: FDA-Public Use
  Company Number: US-AMGEN-USASP2017178001

PATIENT
  Sex: Female

DRUGS (3)
  1. PROLIA [Suspect]
     Active Substance: DENOSUMAB
     Indication: OSTEOPOROSIS POSTMENOPAUSAL
     Dosage: 60 MG, Q6MO
     Route: 065
     Dates: start: 201510, end: 20170208
  2. CALCIUM [Concomitant]
     Active Substance: CALCIUM
     Dosage: UNK
  3. VITAMIN D [Concomitant]
     Active Substance: CHOLECALCIFEROL
     Dosage: UNK

REACTIONS (15)
  - Temporomandibular joint syndrome [Unknown]
  - Amnesia [Unknown]
  - Myalgia [Unknown]
  - Hip fracture [Unknown]
  - Dyspnoea [Unknown]
  - Cystitis [Not Recovered/Not Resolved]
  - Abscess oral [Unknown]
  - Chest pain [Unknown]
  - Tooth disorder [Unknown]
  - Rash [Unknown]
  - Infection [Unknown]
  - Diverticulum [Unknown]
  - Immune system disorder [Unknown]
  - Urinary tract infection [Not Recovered/Not Resolved]
  - Pain in extremity [Unknown]

NARRATIVE: CASE EVENT DATE: 201510
